FAERS Safety Report 19490308 (Version 5)
Quarter: 2022Q2

REPORT INFORMATION
  Report Type: Report from Study
  Country: US (occurrence: US)
  Receive Date: 20210705
  Receipt Date: 20220418
  Transmission Date: 20220720
  Serious: Yes (Other)
  Sender: FDA-Public Use
  Company Number: US-ABBVIE-20K-163-3673361-00

PATIENT
  Sex: Female
  Weight: 127.12 kg

DRUGS (9)
  1. HUMIRA [Suspect]
     Active Substance: ADALIMUMAB
     Indication: Ankylosing spondylitis
     Dosage: CITRATE FREE
     Route: 058
     Dates: start: 2017, end: 202010
  2. HUMIRA [Suspect]
     Active Substance: ADALIMUMAB
     Dosage: CITRATE FREE
     Route: 058
     Dates: start: 202102
  3. HUMIRA [Suspect]
     Active Substance: ADALIMUMAB
     Route: 058
  4. METOPROLOL [Concomitant]
     Active Substance: METOPROLOL
     Indication: Blood pressure measurement
  5. ESCITALOPRAM [Concomitant]
     Active Substance: ESCITALOPRAM OXALATE
     Indication: Depression
  6. MELOXICAM [Concomitant]
     Active Substance: MELOXICAM
     Indication: Pain
  7. ASPIRIN [Concomitant]
     Active Substance: ASPIRIN
     Indication: Cardiac disorder
  8. NITROGLYCERIN [Concomitant]
     Active Substance: NITROGLYCERIN
     Indication: Cardiac disorder
  9. FAMOTIDINE [Concomitant]
     Active Substance: FAMOTIDINE
     Indication: Gastric disorder

REACTIONS (15)
  - Cholelithiasis [Recovered/Resolved]
  - Microvascular coronary artery disease [Not Recovered/Not Resolved]
  - Cardiac disorder [Unknown]
  - Sciatic nerve neuropathy [Recovering/Resolving]
  - Malaise [Unknown]
  - Liver function test increased [Recovered/Resolved]
  - Catheterisation cardiac [Recovering/Resolving]
  - Fibrin D dimer increased [Unknown]
  - Ankylosing spondylitis [Recovering/Resolving]
  - COVID-19 [Recovered/Resolved]
  - Liver function test increased [Unknown]
  - Pain [Recovering/Resolving]
  - Asthma [Not Recovered/Not Resolved]
  - Musculoskeletal chest pain [Recovering/Resolving]
  - Seasonal allergy [Recovering/Resolving]

NARRATIVE: CASE EVENT DATE: 20200101
